FAERS Safety Report 7358837-5 (Version None)
Quarter: 2011Q1

REPORT INFORMATION
  Report Type: 
  Country: None (occurrence: None)
  Receive Date: 20110317
  Receipt Date: 20110310
  Transmission Date: 20110831
  Serious: Yes (Hospitalization)
  Sender: FDA-Public Use
  Company Number: B0699796A

PATIENT
  Age: 38 Year
  Sex: Male
  Weight: 120.5 kg

DRUGS (8)
  1. AVANDIA [Suspect]
     Dosage: 8MG PER DAY
     Route: 048
     Dates: start: 20031211, end: 20051101
  2. HYDROCHLOROTHIAZIDE [Concomitant]
  3. LISINOPRIL [Concomitant]
  4. AMARYL [Concomitant]
     Dates: end: 20051101
  5. BENICAR [Concomitant]
  6. CRESTOR [Concomitant]
     Dates: end: 20051101
  7. GLUCOPHAGE [Concomitant]
     Dates: end: 20051101
  8. NORVASC [Concomitant]

REACTIONS (6)
  - MYOCARDIAL ISCHAEMIA [None]
  - ACUTE CORONARY SYNDROME [None]
  - MYOCARDIAL INFARCTION [None]
  - VENOUS THROMBOSIS [None]
  - ARRHYTHMIA [None]
  - CORONARY ARTERY DISEASE [None]
